FAERS Safety Report 6671765-3 (Version None)
Quarter: 2010Q2

REPORT INFORMATION
  Report Type: 
  Country: None (occurrence: None)
  Receive Date: 20100406
  Receipt Date: 20100406
  Transmission Date: 20101027
  Serious: Yes (Other)
  Sender: FDA-Public Use
  Company Number: None

PATIENT
  Age: 61 Year
  Sex: Female
  Weight: 69.8539 kg

DRUGS (1)
  1. ACTONEL [Suspect]
     Indication: SPINAL OSTEOARTHRITIS
     Dosage: 35MG WEEKLY PO;  APROXIMATELY 2 YEARS
     Route: 048

REACTIONS (3)
  - CALCIUM DEFICIENCY [None]
  - TOOTH DISORDER [None]
  - TOOTH LOSS [None]
